FAERS Safety Report 9976622 (Version 1)
Quarter: 2014Q1

REPORT INFORMATION
  Report Type: Report from Study
  Country: US (occurrence: US)
  Receive Date: 20140306
  Receipt Date: 20140306
  Transmission Date: 20141002
  Serious: No
  Sender: FDA-Public Use
  Company Number: US-ABBVIE-13P-163-1165914-00

PATIENT
  Age: 57 Year
  Sex: Female
  Weight: 94.89 kg

DRUGS (14)
  1. HUMIRA [Suspect]
     Indication: RHEUMATOID ARTHRITIS
     Dates: start: 20131022
  2. PREDNISONE [Concomitant]
     Indication: AUTOIMMUNE DISORDER
  3. PROTONIX [Concomitant]
     Indication: GASTRIC DISORDER
  4. DIOVAN [Concomitant]
     Indication: HYPERTENSION
  5. VICODIN [Concomitant]
     Indication: PAIN
  6. ZOFRAN [Concomitant]
     Indication: NAUSEA
  7. GABAPENTIN [Concomitant]
     Indication: PAIN
  8. ALBUTEROL HFA [Concomitant]
     Indication: ASTHMA
  9. GAS-X [Concomitant]
     Indication: FLATULENCE
  10. TUMS [Concomitant]
     Indication: GASTRIC DISORDER
  11. SYSTANE [Concomitant]
     Indication: DRY EYE
     Dosage: EYE DROPS
  12. ERYTHROMYCIN [Concomitant]
     Indication: DRY EYE
  13. NICODERM CQ [Concomitant]
     Indication: EX-TOBACCO USER
  14. MULTIVITAMINS [Concomitant]
     Indication: VITAMIN SUPPLEMENTATION

REACTIONS (6)
  - Nausea [Recovered/Resolved]
  - Diarrhoea [Recovered/Resolved]
  - Abdominal pain upper [Recovered/Resolved]
  - Flatulence [Recovered/Resolved]
  - Rash [Recovered/Resolved]
  - Injection site bruising [Recovering/Resolving]
